FAERS Safety Report 10078695 (Version 1)
Quarter: 2014Q2

REPORT INFORMATION
  Report Type: Report from Study
  Country: US (occurrence: US)
  Receive Date: 20140415
  Receipt Date: 20140415
  Transmission Date: 20141212
  Serious: Yes (Hospitalization, Other)
  Sender: FDA-Public Use
  Company Number: US-ROCHE-1377871

PATIENT
  Sex: Male
  Weight: 31.9 kg

DRUGS (5)
  1. NUTROPIN [Suspect]
     Indication: HYPOPITUITARISM
     Route: 058
     Dates: start: 20111011
  2. DESMOPRESSIN [Concomitant]
     Dosage: IN AM
     Route: 048
     Dates: start: 20130320
  3. DESMOPRESSIN [Concomitant]
     Dosage: AT HS
     Route: 048
     Dates: start: 20111011
  4. HYDROCORTISONE [Concomitant]
     Route: 048
     Dates: start: 20111011
  5. LEVOTHYROXINE [Concomitant]
     Route: 065
     Dates: start: 20110804

REACTIONS (16)
  - Convulsion [Unknown]
  - Blindness [Unknown]
  - Hypoglycaemia [Unknown]
  - Altered state of consciousness [Unknown]
  - Weight increased [Unknown]
  - Asthenia [Unknown]
  - Insulin-like growth factor increased [Unknown]
  - Muscular weakness [Unknown]
  - Muscular weakness [Unknown]
  - Nasopharyngitis [Unknown]
  - Upper respiratory tract infection [Unknown]
  - Gait disturbance [Unknown]
  - Gait disturbance [Unknown]
  - Urine output increased [Unknown]
  - Dehydration [Unknown]
  - Hypernatraemia [Unknown]
